FAERS Safety Report 5323861-0 (Version None)
Quarter: 2007Q2

REPORT INFORMATION
  Report Type: 
  Country: None (occurrence: None)
  Receive Date: 20070514
  Receipt Date: 20070503
  Transmission Date: 20071010
  Serious: Yes (Death, Hospitalization)
  Sender: FDA-Public Use
  Company Number: NSADSS2002023766

PATIENT
  Age: 67 Year
  Sex: Female

DRUGS (4)
  1. INFLIXIMAB [Suspect]
     Route: 042
  2. INFLIXIMAB [Suspect]
     Indication: RHEUMATOID ARTHRITIS
     Route: 042
  3. CELECOXIB [Concomitant]
     Indication: RHEUMATOID ARTHRITIS
  4. LEDERFOLIN [Concomitant]

REACTIONS (3)
  - BILIARY NEOPLASM [None]
  - BLADDER NEOPLASM [None]
  - HAEMATURIA [None]
